FAERS Safety Report 8765794 (Version 1)
Quarter: 2012Q4

REPORT INFORMATION
  Report Type: 
  Country: US (occurrence: US)
  Receive Date: 20120903
  Receipt Date: 20120903
  Transmission Date: 20130627
  Serious: No
  Sender: FDA-Public Use
  Company Number: US-PFIZER INC-2012212619

PATIENT
  Sex: Female

DRUGS (2)
  1. ZOLOFT [Suspect]
     Dosage: UNK
     Dates: end: 201208
  2. XENAZINE [Interacting]
     Dosage: 25 mg, 4x/day
     Route: 048
     Dates: start: 20110303

REACTIONS (2)
  - Drug interaction [Unknown]
  - Tic [Not Recovered/Not Resolved]
